FAERS Safety Report 24636499 (Version 2)
Quarter: 2024Q4

REPORT INFORMATION
  Report Type: Spontaneous
  Country: CL (occurrence: CL)
  Receive Date: 20241119
  Receipt Date: 20241220
  Transmission Date: 20250114
  Serious: Yes (Death, Other)
  Sender: BIOCON
  Company Number: CL-BUKWANG-BBL2024005068

PATIENT

DRUGS (5)
  1. TRASTUZUMAB [Suspect]
     Active Substance: TRASTUZUMAB
     Indication: Product used for unknown indication
     Dosage: UNK, Q3W (TRASTUZUMAB 8 MG/KG OF WEIGHT IN ITS FIRST DOSE FOLLOWED BY 6 MG/KG OF WEIGHT EVERY 21 DAY
     Route: 042
     Dates: start: 20240412, end: 20240524
  2. PERTUZUMAB [Concomitant]
     Active Substance: PERTUZUMAB
     Indication: Lung infiltration
     Dosage: 840 MG, Q3W (PERTUZUMAB 840 INTRAVENOUSLY IN ITS FIRST DOSE FOLLOWED BY 420 MG INTRAVENOUSLY EVERY 2
     Route: 042
     Dates: start: 20240412
  3. PERTUZUMAB [Concomitant]
     Active Substance: PERTUZUMAB
     Indication: Adenocarcinoma
     Dosage: 420 MG, Q3W (PERTUZUMAB 840 INTRAVENOUSLY IN ITS FIRST DOSE FOLLOWED BY 420 MG INTRAVENOUSLY EVERY 2
     Route: 042
     Dates: start: 20240412
  4. DOCETAXEL [Concomitant]
     Active Substance: DOCETAXEL
     Indication: Lung infiltration
     Dosage: 75 MG/M2, Q3W (DOCITAXEL 75 MG/M2 INTRAVENOUSLY EVERY 21 DAYS)
     Route: 042
     Dates: start: 20240412, end: 20240524
  5. DOCETAXEL [Concomitant]
     Active Substance: DOCETAXEL
     Indication: Adenocarcinoma

REACTIONS (3)
  - Cardio-respiratory arrest [Fatal]
  - Mucosal inflammation [Unknown]
  - Fatigue [Unknown]

NARRATIVE: CASE EVENT DATE: 20240412
